FAERS Safety Report 5565285-7 (Version None)
Quarter: 2007Q4

REPORT INFORMATION
  Report Type: 
  Country: None (occurrence: None)
  Receive Date: 20071218
  Receipt Date: 20020318
  Transmission Date: 20080405
  Serious: Yes (Death, Hospitalization)
  Sender: FDA-Public Use
  Company Number: FR-ROCHE-307652

PATIENT
  Age: 94 Year
  Sex: Female

DRUGS (4)
  1. ROCEPHIN [Suspect]
     Route: 058
     Dates: start: 20011221, end: 20020123
  2. OFLOCET [Interacting]
     Route: 048
     Dates: start: 20011221, end: 20020123
  3. LOVENOX [Concomitant]
     Indication: PROPHYLAXIS
     Route: 058
     Dates: start: 20011127, end: 20020227
  4. TRAMADOL HCL [Concomitant]
     Route: 048
     Dates: start: 20011127, end: 20020227

REACTIONS (2)
  - AGRANULOCYTOSIS [None]
  - LUNG DISORDER [None]
